FAERS Safety Report 5563170-8 (Version None)
Quarter: 2007Q4

REPORT INFORMATION
  Report Type: 
  Country: None (occurrence: None)
  Receive Date: 20071217
  Receipt Date: 20071207
  Transmission Date: 20080405
  Serious: Yes (Other)
  Sender: FDA-Public Use
  Company Number: D0055331A

PATIENT
  Age: 69 Year
  Sex: Female

DRUGS (16)
  1. REQUIP [Suspect]
     Indication: RESTLESS LEGS SYNDROME
     Dosage: 3MG PER DAY
     Route: 048
     Dates: start: 20070601, end: 20071201
  2. L-DOPA [Concomitant]
     Route: 065
  3. BETABLOCKER [Concomitant]
     Route: 065
  4. STATINS [Concomitant]
     Route: 065
  5. MULTIPLE MEDICATION [Concomitant]
     Route: 065
  6. ASPIRIN [Concomitant]
     Dosage: 100MG PER DAY
     Route: 048
  7. FORMOTEROL FUMARATE [Concomitant]
     Route: 055
  8. METFORMIN HCL [Concomitant]
     Dosage: 500MG TWICE PER DAY
     Route: 048
  9. METOPROLOL TARTRATE AND HYDROCHLOROTHIAZIDE [Concomitant]
     Route: 048
  10. MONO MACK DEPOT [Concomitant]
     Route: 048
  11. NITROLINGUAL [Concomitant]
     Route: 048
  12. RAMIPRIL [Concomitant]
     Dosage: 5MG TWICE PER DAY
     Route: 048
  13. ROCORNAL [Concomitant]
     Dosage: 200MG IN THE MORNING
     Route: 048
  14. SIMVASTATIN [Concomitant]
     Dosage: 40MG PER DAY
     Route: 048
  15. SPIRIVA [Concomitant]
     Dosage: 18MCG IN THE MORNING
     Route: 055
  16. TOREM [Concomitant]
     Dosage: 10MG PER DAY
     Route: 048

REACTIONS (3)
  - ALANINE AMINOTRANSFERASE INCREASED [None]
  - BLOOD ALKALINE PHOSPHATASE INCREASED [None]
  - GAMMA-GLUTAMYLTRANSFERASE INCREASED [None]
